FAERS Safety Report 17169297 (Version 1)
Quarter: 2019Q4

REPORT INFORMATION
  Report Type: Spontaneous
  Country: CA (occurrence: CA)
  Receive Date: 20191218
  Receipt Date: 20191218
  Transmission Date: 20200122
  Serious: Yes (Hospitalization)
  Sender: FDA-Public Use
  Company Number: CA-ROCHE-2496025

PATIENT
  Age: 52 Year
  Sex: Female

DRUGS (26)
  1. CLONAZEPAM. [Suspect]
     Active Substance: CLONAZEPAM
     Indication: HYPOMANIA
     Route: 048
  2. APTIVUS [Suspect]
     Active Substance: TIPRANAVIR
     Indication: HIV INFECTION
     Route: 048
  3. TEGRETOL [Suspect]
     Active Substance: CARBAMAZEPINE
     Indication: HYPOMANIA
     Route: 065
  4. ACETAMINOPHEN. [Suspect]
     Active Substance: ACETAMINOPHEN
     Indication: PAIN IN EXTREMITY
     Route: 048
  5. QUETIAPINE. [Suspect]
     Active Substance: QUETIAPINE
     Indication: PSYCHOTIC DISORDER
     Route: 048
  6. RISPERIDONE. [Suspect]
     Active Substance: RISPERIDONE
     Indication: PSYCHOTIC DISORDER
     Route: 048
  7. CHLORAL HYDRATE [Concomitant]
     Active Substance: CHLORAL HYDRATE
  8. NYSTATIN. [Concomitant]
     Active Substance: NYSTATIN
  9. T-20 [Concomitant]
     Active Substance: ENFUVIRTIDE
  10. DIAZEPAM. [Suspect]
     Active Substance: DIAZEPAM
     Route: 048
  11. BISACODYL. [Concomitant]
     Active Substance: BISACODYL
  12. CALCIUM CARBONATE. [Concomitant]
     Active Substance: CALCIUM CARBONATE
  13. DIAZEPAM. [Suspect]
     Active Substance: DIAZEPAM
     Route: 065
  14. PROCYCLIDINE HCL [Suspect]
     Active Substance: PROCYCLIDINE HYDROCHLORIDE
     Indication: PROPHYLAXIS
     Route: 048
  15. 3TC [Concomitant]
     Active Substance: LAMIVUDINE
  16. ABACAVIR. [Concomitant]
     Active Substance: ABACAVIR
     Route: 065
  17. BENADRYL [Concomitant]
     Active Substance: DIPHENHYDRAMINE HYDROCHLORIDE
     Route: 065
  18. LITHIUM. [Concomitant]
     Active Substance: LITHIUM
  19. KALETRA [Concomitant]
     Active Substance: LOPINAVIR\RITONAVIR
  20. TRAZODONE [Suspect]
     Active Substance: TRAZODONE HYDROCHLORIDE
     Indication: DEPRESSION
     Route: 048
  21. ATOVAQUONE;PROGUANIL [Concomitant]
  22. LACTULOSE. [Concomitant]
     Active Substance: LACTULOSE
     Dosage: LACTULOSE SYRUP
     Route: 065
  23. DIAZEPAM. [Suspect]
     Active Substance: DIAZEPAM
     Indication: DEPRESSION
     Route: 065
  24. OLANZAPINE. [Suspect]
     Active Substance: OLANZAPINE
     Indication: PSYCHOTIC DISORDER
     Route: 065
  25. OLANZAPINE. [Suspect]
     Active Substance: OLANZAPINE
     Route: 048
  26. IMODIUM [Concomitant]
     Active Substance: LOPERAMIDE HYDROCHLORIDE

REACTIONS (12)
  - Condition aggravated [Unknown]
  - Blood bilirubin increased [Unknown]
  - Hypomania [Unknown]
  - Schizophrenia [Unknown]
  - Hepatic enzyme increased [Unknown]
  - Psychotic disorder [Unknown]
  - Jaundice cholestatic [Unknown]
  - Pneumonia [Unknown]
  - Nausea [Unknown]
  - Cholelithiasis [Unknown]
  - Hepatotoxicity [Unknown]
  - Vomiting [Unknown]
